FAERS Safety Report 9433778 (Version 1)
Quarter: 2013Q3

REPORT INFORMATION
  Report Type: Spontaneous
  Country: US (occurrence: US)
  Receive Date: 20130731
  Receipt Date: 20130731
  Transmission Date: 20140515
  Serious: No
  Sender: FDA-Public Use
  Company Number: US-009507513-1307USA016788

PATIENT
  Age: 82 Year
  Sex: Female

DRUGS (1)
  1. DULERA [Suspect]
     Indication: ASTHMA
     Dosage: 200/5 MICROGRAMS
     Route: 055
     Dates: start: 201307, end: 201307

REACTIONS (1)
  - Palpitations [Recovered/Resolved]
